FAERS Safety Report 12250563 (Version 9)
Quarter: 2020Q1

REPORT INFORMATION
  Report Type: Spontaneous
  Country: US (occurrence: US)
  Receive Date: 20160408
  Receipt Date: 20200219
  Transmission Date: 20200409
  Serious: Yes (Other)
  Sender: FDA-Public Use
  Company Number: US-PFIZER INC-2016196196

PATIENT
  Age: 66 Year
  Sex: Female
  Weight: 69 kg

DRUGS (3)
  1. LYRICA [Concomitant]
     Active Substance: PREGABALIN
     Dosage: 2X/DAY (1 IN MORNING AND 1 AT NIGHT)
  2. CELEBREX [Suspect]
     Active Substance: CELECOXIB
     Indication: MUSCULOSKELETAL PAIN
     Dosage: 400 MG, DAILY (2 OF THEM A DAY)
     Route: 048
  3. CELEBREX [Suspect]
     Active Substance: CELECOXIB
     Dosage: 200 MG, 2X/DAY (1 IN MORNING AND 1 AT NIGHT)
     Route: 048

REACTIONS (10)
  - Vomiting [Unknown]
  - Seizure [Unknown]
  - Ankle fracture [Unknown]
  - Paraesthesia [Unknown]
  - Gait disturbance [Unknown]
  - Sleep disorder [Unknown]
  - Malaise [Unknown]
  - Disturbance in attention [Unknown]
  - Fall [Unknown]
  - Pain [Not Recovered/Not Resolved]

NARRATIVE: CASE EVENT DATE: 20190804
